FAERS Safety Report 7303846-5 (Version None)
Quarter: 2011Q1

REPORT INFORMATION
  Report Type: 
  Country: None (occurrence: None)
  Receive Date: 20110221
  Receipt Date: 20110216
  Transmission Date: 20110831
  Serious: Yes (Other)
  Sender: FDA-Public Use
  Company Number: A0900992A

PATIENT
  Age: 52 Year
  Sex: Male

DRUGS (4)
  1. SINGULAIR [Concomitant]
  2. DIOVAN [Concomitant]
  3. ADVAIR DISKUS 100/50 [Suspect]
     Indication: ASTHMA
     Dosage: 1PUFF TWICE PER DAY
     Route: 055
     Dates: start: 20040101
  4. NORVASC [Concomitant]

REACTIONS (5)
  - ASTHMA [None]
  - INFLUENZA [None]
  - PRODUCT QUALITY ISSUE [None]
  - INHALATION THERAPY [None]
  - NASOPHARYNGITIS [None]
